FAERS Safety Report 9213863 (Version 2)
Quarter: 2013Q2

REPORT INFORMATION
  Report Type: Spontaneous
  Country: US (occurrence: US)
  Receive Date: 20130405
  Receipt Date: 20130412
  Transmission Date: 20140414
  Serious: Yes (Hospitalization)
  Sender: FDA-Public Use
  Company Number: US-009507513-1304USA000776

PATIENT
  Age: 51 Year
  Sex: Male

DRUGS (3)
  1. VICTRELIS [Suspect]
     Indication: HEPATITIS C
     Dosage: UNK
     Route: 048
     Dates: start: 2012, end: 2013
  2. REBETOL [Suspect]
     Dosage: UNK
     Route: 048
     Dates: start: 2012, end: 2013
  3. PEGASYS [Suspect]
     Dosage: UNK
     Dates: start: 2012, end: 2013

REACTIONS (2)
  - Abdominal pain [Recovered/Resolved]
  - Muscle spasms [Recovered/Resolved]
